FAERS Safety Report 7002032-6 (Version None)
Quarter: 2010Q3

REPORT INFORMATION
  Report Type: 
  Country: None (occurrence: None)
  Receive Date: 20100917
  Receipt Date: 20100917
  Transmission Date: 20110219
  Serious: No
  Sender: FDA-Public Use
  Company Number: None

PATIENT

DRUGS (1)
  1. RISPERIDONE [Suspect]
     Dates: start: 20100810

REACTIONS (6)
  - EPISTAXIS [None]
  - NASAL DISORDER [None]
  - RASH [None]
  - RESPIRATORY DISORDER [None]
  - SCAB [None]
  - SCAR [None]
